FAERS Safety Report 19501002 (Version 9)
Quarter: 2023Q1

REPORT INFORMATION
  Report Type: Report from Study
  Country: PL (occurrence: None)
  Receive Date: 20210707
  Receipt Date: 20230106
  Transmission Date: 20230417
  Serious: No
  Sender: FDA-Public Use
  Company Number: PL-ROCHE-2825468

PATIENT
  Age: 71 Year
  Sex: Female
  Weight: 71 kg

DRUGS (18)
  1. TIRAGOLUMAB [Suspect]
     Active Substance: TIRAGOLUMAB
     Indication: Non-small cell lung cancer metastatic
     Dosage: IV INFUSION Q3W ON DAY 1 OF EACH 21-DAY CYCLE (AS PER PROTOCOL)?START DATE OF MOST RECENT DOSE OF S
     Route: 042
     Dates: start: 20210430
  2. ATEZOLIZUMAB [Suspect]
     Active Substance: ATEZOLIZUMAB
     Indication: Non-small cell lung cancer metastatic
     Dosage: ATEZOLIZUMAB 1200 MILLIGRAMS (MG) ADMINISTERED BY INTRAVENOUS (IV) INFUSION Q3W ON DAY 1 OF EACH 21-
     Route: 041
     Dates: start: 20210430
  3. BETAHISTINE [Concomitant]
     Active Substance: BETAHISTINE
     Indication: Vertigo
     Dates: start: 1981
  4. NILOGRIN [Concomitant]
     Indication: Vertigo
     Dates: start: 2020
  5. SYMPRAMOL [Concomitant]
     Indication: Neurosis
     Dates: start: 2020
  6. CITALOPRAM HYDROBROMIDE [Concomitant]
     Active Substance: CITALOPRAM HYDROBROMIDE
     Indication: Neurosis
     Dates: start: 2019
  7. ZOLPIDEM TARTRATE [Concomitant]
     Active Substance: ZOLPIDEM TARTRATE
     Indication: Neurosis
     Dates: start: 2019
  8. IPP (POLAND) [Concomitant]
     Indication: Ulcer
     Route: 048
     Dates: start: 20210521
  9. ENOXAPARIN SODIUM [Concomitant]
     Active Substance: ENOXAPARIN SODIUM
     Route: 058
     Dates: start: 20210521, end: 20210601
  10. POTASSIUM CHLORIDE [Concomitant]
     Active Substance: POTASSIUM CHLORIDE
     Route: 048
     Dates: start: 20210521
  11. DOBROSON [Concomitant]
     Indication: Insomnia
     Dates: start: 20210525, end: 20210602
  12. NAPROXEN [Concomitant]
     Active Substance: NAPROXEN
     Indication: Cardiac tamponade
     Route: 048
     Dates: start: 20210521
  13. ALBUMIN HUMAN [Concomitant]
     Active Substance: ALBUMIN HUMAN
     Indication: Cardiac tamponade
     Route: 042
     Dates: start: 20210521, end: 20210525
  14. MORPHINE SULFATE [Concomitant]
     Active Substance: MORPHINE SULFATE
     Indication: Cardiac tamponade
     Route: 048
     Dates: start: 20210524
  15. SOLU-MEDROL [Concomitant]
     Active Substance: METHYLPREDNISOLONE SODIUM SUCCINATE
     Indication: Cardiac tamponade
     Route: 042
     Dates: start: 20210524, end: 20210602
  16. BIOTRAXON [Concomitant]
     Indication: Cardiac tamponade
     Route: 042
     Dates: start: 20210524, end: 20210601
  17. MEDROL [Concomitant]
     Active Substance: METHYLPREDNISOLONE
     Dates: start: 20210611
  18. OXYGEN [Concomitant]
     Active Substance: OXYGEN
     Route: 055
     Dates: start: 20210521, end: 20210530

REACTIONS (1)
  - Infusion related reaction [Recovered/Resolved]

NARRATIVE: CASE EVENT DATE: 20210430
